FAERS Safety Report 17338740 (Version 1)
Quarter: 2020Q1

REPORT INFORMATION
  Report Type: Spontaneous
  Country: US (occurrence: US)
  Receive Date: 20200129
  Receipt Date: 20200129
  Transmission Date: 20200409
  Serious: No
  Sender: FDA-Public Use
  Company Number: US-ALLERGAN-1918542US

PATIENT
  Age: 61 Year
  Sex: Male
  Weight: 113.4 kg

DRUGS (2)
  1. PREDNISOLONE ACETATE, 1.0% [Suspect]
     Active Substance: PREDNISOLONE ACETATE
     Dosage: 2 GTT, BID
     Route: 047
     Dates: start: 2018
  2. PREDNISOLONE ACETATE, 1.0% [Suspect]
     Active Substance: PREDNISOLONE ACETATE
     Indication: DRY EYE
     Dosage: 2 GTT, QD
     Route: 047

REACTIONS (5)
  - Product quality issue [Unknown]
  - Product storage error [Unknown]
  - Product residue present [Recovering/Resolving]
  - Spinal osteoarthritis [Unknown]
  - Off label use [Unknown]

NARRATIVE: CASE EVENT DATE: 20190422
